FAERS Safety Report 20806962 (Version 5)
Quarter: 2023Q2

REPORT INFORMATION
  Report Type: Report from Study
  Country: US (occurrence: US)
  Receive Date: 20220510
  Receipt Date: 20230415
  Transmission Date: 20230722
  Serious: Yes (Hospitalization, Other)
  Sender: FDA-Public Use
  Company Number: US-ABBVIE-22K-163-4385587-00

PATIENT
  Age: 80 Year
  Sex: Male

DRUGS (6)
  1. HUMIRA [Suspect]
     Active Substance: ADALIMUMAB
     Indication: Colitis ulcerative
     Dosage: CITRATE FREE.?FORM STRENGTH: 40 MILIGRAM
     Route: 058
  2. HUMIRA [Suspect]
     Active Substance: ADALIMUMAB
     Dosage: CITRATE FREE
     Route: 058
     Dates: start: 20181112
  3. HUMIRA [Suspect]
     Active Substance: ADALIMUMAB
     Dosage: CITRATE FREE?FORM STRENGTH: 40 MILIGRAM
     Route: 058
     Dates: start: 20181112
  4. JANSSEN COVID-19 VACCINE [Concomitant]
     Active Substance: AD26.COV2.S
     Indication: COVID-19 immunisation
     Dosage: TIME INTERVAL: 1 TOTAL: FIRST DOSE
     Route: 030
     Dates: start: 20210312, end: 20210312
  5. JANSSEN COVID-19 VACCINE [Concomitant]
     Active Substance: AD26.COV2.S
     Indication: COVID-19 immunisation
     Dosage: TIME INTERVAL: 1 TOTAL: SECOND DOSE
     Route: 030
     Dates: start: 20211025, end: 20211025
  6. MODERNA COVID-19 VACCINE [Concomitant]
     Active Substance: ELASOMERAN
     Indication: COVID-19 immunisation
     Dosage: TIME INTERVAL: 1 TOTAL: THIRD DOSE OR BOOSTER DOSE
     Route: 030
     Dates: start: 20220625, end: 20220625

REACTIONS (14)
  - Cardiac failure congestive [Unknown]
  - Gastrooesophageal reflux disease [Recovered/Resolved]
  - Spinal operation [Unknown]
  - Gastric disorder [Recovering/Resolving]
  - Weight decreased [Unknown]
  - Scoliosis [Unknown]
  - Atrial fibrillation [Unknown]
  - Dyspnoea [Recovered/Resolved]
  - Dyspnoea [Recovering/Resolving]
  - Asthma [Unknown]
  - Chronic obstructive pulmonary disease [Unknown]
  - Hospitalisation [Unknown]
  - Choking [Not Recovered/Not Resolved]
  - Hospitalisation [Recovered/Resolved]

NARRATIVE: CASE EVENT DATE: 20181112
